FAERS Safety Report 14710228 (Version 1)
Quarter: 2018Q2

REPORT INFORMATION
  Report Type: Spontaneous
  Country: US (occurrence: US)
  Receive Date: 20180403
  Receipt Date: 20180403
  Transmission Date: 20180711
  Serious: No
  Sender: FDA-Public Use
  Company Number: US-ROCHE-1924067

PATIENT
  Sex: Male

DRUGS (2)
  1. ERIVEDGE [Suspect]
     Active Substance: VISMODEGIB
     Dosage: 1 CAPSULE EVERY DAY
     Route: 048
     Dates: start: 20151223
  2. ERIVEDGE [Suspect]
     Active Substance: VISMODEGIB
     Indication: FACIAL PARALYSIS
     Dosage: 1 CAPSULE EVERY DAY
     Route: 048
     Dates: start: 20141224

REACTIONS (3)
  - Muscle spasms [Not Recovered/Not Resolved]
  - Myalgia [Not Recovered/Not Resolved]
  - Diarrhoea [Not Recovered/Not Resolved]
